FAERS Safety Report 10180510 (Version 1)
Quarter: 2014Q2

REPORT INFORMATION
  Report Type: Spontaneous
  Country: US (occurrence: US)
  Receive Date: 20140519
  Receipt Date: 20140519
  Transmission Date: 20141212
  Serious: No
  Sender: FDA-Public Use
  Company Number: US-AMGEN INC.-USASP2014002447

PATIENT
  Age: 68 Year
  Sex: Female

DRUGS (3)
  1. PROLIA [Suspect]
     Indication: OSTEOPENIA
     Dosage: UNK
     Route: 065
     Dates: start: 20140102
  2. CALCIUM [Concomitant]
  3. VITAMIN D                          /00107901/ [Concomitant]

REACTIONS (4)
  - Back pain [Unknown]
  - Inflammation [Unknown]
  - Mobility decreased [Unknown]
  - Malaise [Unknown]
